FAERS Safety Report 4436879-7 (Version None)
Quarter: 2004Q3

REPORT INFORMATION
  Report Type: 
  Country: None (occurrence: None)
  Receive Date: 20040830
  Receipt Date: 20040826
  Transmission Date: 20050211
  Serious: Yes (Life-Threatening, Hospitalization)
  Sender: FDA-Public Use
  Company Number: US-BRISTOL-MYERS SQUIBB COMPANY-12683686

PATIENT
  Age: 47 Year
  Sex: Female

DRUGS (9)
  1. PACLITAXEL [Suspect]
     Indication: OVARIAN CANCER
     Route: 042
     Dates: start: 20030411, end: 20030411
  2. SYNTHROID [Concomitant]
  3. LISINOPRIL [Concomitant]
  4. COUMADIN [Concomitant]
     Indication: DEEP VEIN THROMBOSIS
  5. ZANTAC [Concomitant]
  6. ATENOLOL [Concomitant]
  7. HYDROCHLOROTHIAZIDE [Concomitant]
  8. PERCOCET [Concomitant]
  9. SIMETHICONE [Concomitant]

REACTIONS (10)
  - ANAEMIA [None]
  - ARRHYTHMIA [None]
  - ATRIAL FIBRILLATION [None]
  - CARDIAC ARREST [None]
  - CARDIAC FAILURE [None]
  - EUTHYROID SICK SYNDROME [None]
  - INFUSION RELATED REACTION [None]
  - MALNUTRITION [None]
  - RENAL FAILURE [None]
  - THROMBOCYTOPENIA [None]
